FAERS Safety Report 4591491-4 (Version None)
Quarter: 2005Q1

REPORT INFORMATION
  Report Type: 
  Country: None (occurrence: None)
  Receive Date: 20050222
  Receipt Date: 20050209
  Transmission Date: 20050727
  Serious: Yes (Death)
  Sender: FDA-Public Use
  Company Number: 2005022770

PATIENT
  Age: 18 Year
  Sex: Female

DRUGS (8)
  1. GLADEM (SERTRALINE) [Suspect]
     Indication: BORDERLINE PERSONALITY DISORDER
     Dosage: 150 MG (50 MG), ORAL
     Route: 048
     Dates: end: 20040912
  2. CARBAMAZEPINE [Concomitant]
  3. PROTHIPENDYL HYDROCHLORIDE (PROTHIPENDYL HYDROCHLORIDE) [Concomitant]
  4. RISPERIDONE 9RISPERIDONE) [Concomitant]
  5. MEPROBAMATE [Concomitant]
  6. FLUMAZENIL (FLUMAZENIL) [Concomitant]
  7. CHARCOAL, ACTIVATED (CHARCOAL, ACTIVATED) [Concomitant]
  8. ALL OTHER THERAPEUTIC PRODUCTS (ALL OTHER THERAPEUTIC PRODUCTS) [Concomitant]

REACTIONS (2)
  - COMPLETED SUICIDE [None]
  - INJURY ASPHYXIATION [None]
